FAERS Safety Report 22203903 (Version 1)
Quarter: 2023Q2

REPORT INFORMATION
  Report Type: Spontaneous
  Country: US (occurrence: US)
  Receive Date: 20230412
  Receipt Date: 20230412
  Transmission Date: 20230721
  Serious: Yes (Other)
  Sender: FDA-Public Use
  Company Number: US-SUNOVION-2023SUN000501

PATIENT
  Age: 65 Year
  Sex: Male

DRUGS (1)
  1. APTIOM [Suspect]
     Active Substance: ESLICARBAZEPINE ACETATE
     Indication: Seizure
     Dosage: 600 MG, BID
     Route: 048

REACTIONS (2)
  - Seizure [Not Recovered/Not Resolved]
  - Inappropriate schedule of product administration [Unknown]
